FAERS Safety Report 7274456-3 (Version None)
Quarter: 2011Q1

REPORT INFORMATION
  Report Type: 
  Country: None (occurrence: None)
  Receive Date: 20110204
  Receipt Date: 20110203
  Transmission Date: 20110831
  Serious: Yes (Other)
  Sender: FDA-Public Use
  Company Number: US-PFIZER INC-2011025029

PATIENT
  Sex: Female
  Weight: 97.959 kg

DRUGS (1)
  1. GEODON [Suspect]
     Indication: MEMORY IMPAIRMENT
     Dosage: 40 MG, 1X/DAY

REACTIONS (1)
  - HYPERTENSION [None]
